FAERS Safety Report 6016579-2 (Version None)
Quarter: 2008Q4

REPORT INFORMATION
  Report Type: 
  Country: None (occurrence: None)
  Receive Date: 20081222
  Receipt Date: 20081211
  Transmission Date: 20090506
  Serious: Yes (Other)
  Sender: FDA-Public Use
  Company Number: PHHY2008JP32309

PATIENT
  Sex: Male
  Weight: 9.3 kg

DRUGS (1)
  1. TEGRETOL [Suspect]
     Dosage: 460 MG, UNK
     Route: 048
     Dates: start: 20081211

REACTIONS (2)
  - GASTRIC LAVAGE [None]
  - OVERDOSE [None]
